FAERS Safety Report 4446777-0 (Version None)
Quarter: 2004Q3

REPORT INFORMATION
  Report Type: 
  Country: None (occurrence: None)
  Receive Date: 20040910
  Receipt Date: 20040830
  Transmission Date: 20050211
  Serious: Yes (Disabling)
  Sender: FDA-Public Use
  Company Number: 139264USA

PATIENT
  Age: 68 Year
  Sex: Female
  Weight: 124.7392 kg

DRUGS (7)
  1. NABUMETONE [Suspect]
     Indication: ARTHRITIS
     Dosage: 750 MILLIGRAM BID ORAL
     Route: 048
     Dates: start: 20040609, end: 20040614
  2. AMARYL [Concomitant]
  3. TEVETEN [Concomitant]
  4. ALTACE [Concomitant]
  5. WATER PILL [Concomitant]
  6. CLARITIN [Concomitant]
  7. ALEVE [Concomitant]

REACTIONS (3)
  - MENIERE'S DISEASE [None]
  - SINUS PAIN [None]
  - SINUSITIS [None]
